FAERS Safety Report 7527598-9 (Version None)
Quarter: 2011Q2

REPORT INFORMATION
  Report Type: 
  Country: None (occurrence: None)
  Receive Date: 20110607
  Receipt Date: 20110601
  Transmission Date: 20111010
  Serious: No
  Sender: FDA-Public Use
  Company Number: US-PFIZER INC-2011121924

PATIENT
  Sex: Female

DRUGS (8)
  1. FOSAMAX [Concomitant]
  2. BUMEX [Concomitant]
  3. TETRACYCLINE HYDROCHLORIDE [Concomitant]
  4. FORTEO [Concomitant]
  5. CELEBREX [Suspect]
     Dosage: UNK
  6. BONIVA [Concomitant]
  7. BIAXIN [Concomitant]
  8. PENICILLIN G PROCAINE [Concomitant]

REACTIONS (2)
  - BONE SCAN ABNORMAL [None]
  - HYPERSENSITIVITY [None]
